FAERS Safety Report 4398147-1 (Version None)
Quarter: 2004Q3

REPORT INFORMATION
  Report Type: 
  Country: None (occurrence: None)
  Receive Date: 20040715
  Receipt Date: 20040706
  Transmission Date: 20050211
  Serious: Yes (Hospitalization)
  Sender: FDA-Public Use
  Company Number: FR-BRISTOL-MYERS SQUIBB COMPANY-12633335

PATIENT
  Age: 82 Year
  Sex: Female
  Weight: 62 kg

DRUGS (9)
  1. COUMADIN [Suspect]
     Indication: ANTICOAGULANT THERAPY
     Dosage: DOSE UNSPECIFIED
     Route: 048
     Dates: start: 19940615, end: 20040401
  2. AVLOCARDYL [Concomitant]
  3. LASIX [Concomitant]
  4. COZAAR [Concomitant]
  5. FLECAINE [Concomitant]
  6. AMLOR [Concomitant]
  7. LANZOR [Concomitant]
  8. STABLON [Concomitant]
  9. FOSAMAX [Concomitant]

REACTIONS (2)
  - DIVERTICULUM [None]
  - HAEMATOCHEZIA [None]
